FAERS Safety Report 8218216-5 (Version None)
Quarter: 2012Q1

REPORT INFORMATION
  Report Type: 
  Country: None (occurrence: None)
  Receive Date: 20120319
  Receipt Date: 20120307
  Transmission Date: 20120608
  Serious: Yes (Death)
  Sender: FDA-Public Use
  Company Number: GB-ROCHE-1048147

PATIENT
  Age: 25 Year
  Sex: Female

DRUGS (2)
  1. ALTEPLASE [Suspect]
     Indication: PULMONARY EMBOLISM
     Dates: start: 20111001
  2. PROPRANOLOL [Concomitant]
     Indication: ANXIETY

REACTIONS (2)
  - CARDIAC ARREST [None]
  - BLOOD CATECHOLAMINES INCREASED [None]
